FAERS Safety Report 10897526 (Version 3)
Quarter: 2015Q3

REPORT INFORMATION
  Report Type: Spontaneous
  Country: US (occurrence: US)
  Receive Date: 20150309
  Receipt Date: 20150923
  Transmission Date: 20151125
  Serious: Yes (Other)
  Sender: FDA-Public Use
  Company Number: US-BAYER-2015-033020

PATIENT
  Age: 19 Year
  Sex: Female
  Weight: 75 kg

DRUGS (6)
  1. REGLAN [Concomitant]
     Active Substance: METOCLOPRAMIDE HYDROCHLORIDE
     Dosage: 10 MG, PRN
     Route: 048
  2. LO LOESTRIN FE [Concomitant]
     Active Substance: ETHINYL ESTRADIOL\NORETHINDRONE ACETATE
  3. ACIDOPHILUS [Concomitant]
     Active Substance: LACTOBACILLUS ACIDOPHILUS
     Dosage: 2 EVERY 6 HOURS
     Route: 048
  4. BACTRIM [Concomitant]
     Active Substance: SULFAMETHOXAZOLE\TRIMETHOPRIM
     Dosage: 800 MG, BID
     Route: 048
  5. MIRENA [Suspect]
     Active Substance: LEVONORGESTREL
     Indication: CONTRACEPTION
     Dosage: 20 MCG/24HR, CONT
     Route: 015
     Dates: start: 20040303, end: 20110823
  6. MEDROL [Concomitant]
     Active Substance: METHYLPREDNISOLONE
     Dosage: PER INSTRUCTIONS

REACTIONS (14)
  - Medical device discomfort [None]
  - Device issue [None]
  - Device use error [None]
  - Depression [None]
  - Internal injury [None]
  - Genital haemorrhage [None]
  - Depressed mood [None]
  - Pelvic pain [None]
  - Anxiety [None]
  - Uterine perforation [None]
  - Injury [None]
  - Fear [None]
  - Abdominal pain [None]
  - Emotional distress [None]

NARRATIVE: CASE EVENT DATE: 200907
